FAERS Safety Report 4345180-1 (Version None)
Quarter: 2004Q2

REPORT INFORMATION
  Report Type: 
  Country: None (occurrence: None)
  Receive Date: 20040422
  Receipt Date: 20040329
  Transmission Date: 20050107
  Serious: Yes (Death)
  Sender: FDA-Public Use
  Company Number: 20040400276

PATIENT
  Age: 15 Year
  Sex: Female

DRUGS (3)
  1. MORPHINE [Suspect]
     Indication: DRUG ABUSER
  2. METHAMPHETAMINE HCL [Suspect]
     Indication: DRUG ABUSER
  3. AMPHETAMINE [Suspect]
     Indication: DRUG ABUSER

REACTIONS (2)
  - DRUG ABUSER [None]
  - DRUG TOXICITY [None]
